FAERS Safety Report 6076234-X (Version None)
Quarter: 2009Q1

REPORT INFORMATION
  Report Type: 
  Country: None (occurrence: None)
  Receive Date: 20090209
  Receipt Date: 20090128
  Transmission Date: 20090719
  Serious: Yes (Other)
  Sender: FDA-Public Use
  Company Number: 2009-00370

PATIENT
  Age: 75 Year
  Sex: Female

DRUGS (3)
  1. VELCADE [Suspect]
     Indication: MULTIPLE MYELOMA
  2. MELPHALAN(MELPHALAN) [Suspect]
     Indication: MULTIPLE MYELOMA
  3. PREDNISONE TAB [Suspect]
     Indication: MULTIPLE MYELOMA

REACTIONS (2)
  - CONSTIPATION [None]
  - RECTAL HAEMORRHAGE [None]
